FAERS Safety Report 6317168-2 (Version None)
Quarter: 2009Q3

REPORT INFORMATION
  Report Type: 
  Country: None (occurrence: None)
  Receive Date: 20090819
  Receipt Date: 20090807
  Transmission Date: 20100115
  Serious: Yes (Hospitalization)
  Sender: FDA-Public Use
  Company Number: 237639K09USA

PATIENT
  Age: 35 Year
  Sex: Female
  Weight: 57 kg

DRUGS (5)
  1. REBIF [Suspect]
     Indication: MULTIPLE SCLEROSIS
     Dosage: 44 MCG, 3 IN 1 WEEKS, SUBCUTANEOUS
     Route: 058
     Dates: start: 20071010, end: 20090709
  2. REBIF [Suspect]
     Indication: MULTIPLE SCLEROSIS
     Dosage: 44 MCG, 3 IN 1 WEEKS, SUBCUTANEOUS
     Route: 058
     Dates: start: 20090716
  3. BACLOFEN [Concomitant]
  4. TRI LEVEST CONTRACEPTIVE (ORAL CONTRACEPTIVE NOS) [Concomitant]
  5. MOTRIN [Concomitant]

REACTIONS (5)
  - ASTHENIA [None]
  - INJECTION SITE ABSCESS [None]
  - INJECTION SITE CELLULITIS [None]
  - RASH GENERALISED [None]
  - STAPHYLOCOCCAL INFECTION [None]
